FAERS Safety Report 9767849 (Version 1)
Quarter: 2013Q4

REPORT INFORMATION
  Report Type: Spontaneous
  Country: US (occurrence: None)
  Receive Date: 20131213
  Receipt Date: 20131213
  Transmission Date: 20140711
  Serious: Yes (Hospitalization)
  Sender: FDA-Public Use
  Company Number: IBUP20130019

PATIENT
  Age: 87 Year
  Sex: Female

DRUGS (7)
  1. IBUPROFEN [Suspect]
     Indication: PRODUCT USED FOR UNKNOWN INDICATION
     Route: 048
  2. DDAVP [Suspect]
     Indication: ENURESIS
     Route: 048
  3. ASPIRIN (ACETYLSALICYLIC ACID) (UNKNOWN) (ACETYLSALICYLIC ACID) [Suspect]
     Indication: PRODUCT USED FOR UNKNOWN INDICATION
  4. ALENDRONATE [Concomitant]
  5. SOLIFENACIN [Concomitant]
  6. ATENOLOL [Concomitant]
  7. GABAPENTIN [Concomitant]

REACTIONS (1)
  - Hyponatraemia [None]
